FAERS Safety Report 6326179-2 (Version None)
Quarter: 2009Q3

REPORT INFORMATION
  Report Type: 
  Country: None (occurrence: None)
  Receive Date: 20090824
  Receipt Date: 20090824
  Transmission Date: 20100115
  Serious: Yes (Congenital Anomaly, Other)
  Sender: FDA-Public Use
  Company Number: US-PFIZER INC-2009237591

PATIENT

DRUGS (2)
  1. ZOLOFT [Suspect]
     Route: 064
  2. ZOLPIDEM TARTRATE [Suspect]
     Indication: SLEEP DISORDER
     Route: 064

REACTIONS (2)
  - DRUG EXPOSURE DURING PREGNANCY [None]
  - SKELETON DYSPLASIA [None]
